FAERS Safety Report 9121190 (Version 1)
Quarter: 2013Q1

REPORT INFORMATION
  Report Type: Spontaneous
  Country: GB (occurrence: GB)
  Receive Date: 20130225
  Receipt Date: 20130225
  Transmission Date: 20140127
  Serious: Yes (Death, Hospitalization)
  Sender: FDA-Public Use
  Company Number: GB-EISAI INC-E7389-03518-SPO-GB

PATIENT
  Age: 51 Year
  Sex: Female

DRUGS (2)
  1. HALAVEN [Suspect]
     Dosage: UNKNOWN
     Route: 065
     Dates: start: 20120814, end: 20121204
  2. HALAVEN [Suspect]
     Route: 065
     Dates: start: 200805, end: 200906

REACTIONS (7)
  - Death [Fatal]
  - Infection [Unknown]
  - Febrile neutropenia [Unknown]
  - White blood cell count decreased [Unknown]
  - General physical health deterioration [Unknown]
  - Mobility decreased [Unknown]
  - Fall [Unknown]
